FAERS Safety Report 16341816 (Version 1)
Quarter: 2019Q2

REPORT INFORMATION
  Report Type: Spontaneous
  Country: NL (occurrence: NL)
  Receive Date: 20190522
  Receipt Date: 20190522
  Transmission Date: 20190711
  Serious: Yes (Hospitalization)
  Sender: FDA-Public Use
  Company Number: NL-TEVA-2019-NL-1054206

PATIENT
  Age: 27 Year
  Sex: Female
  Weight: 60 kg

DRUGS (2)
  1. PREDNISON [Concomitant]
     Active Substance: PREDNISONE
  2. CINQAERO (RESLIZUMAB) OPLOSSING VOOR INFUUS, 10 MG/ML (MILLIGRAM PER M [Suspect]
     Active Substance: RESLIZUMAB
     Indication: ASTHMA
     Dosage: 175ML 1X 4 WEEK
     Route: 042
     Dates: start: 20190117

REACTIONS (2)
  - Painful respiration [Not Recovered/Not Resolved]
  - Nausea [Recovering/Resolving]

NARRATIVE: CASE EVENT DATE: 20190418
